FAERS Safety Report 21999072 (Version 2)
Quarter: 2023Q1

REPORT INFORMATION
  Report Type: Spontaneous
  Country: SK (occurrence: SK)
  Receive Date: 20230216
  Receipt Date: 20230310
  Transmission Date: 20230417
  Serious: Yes (Other)
  Sender: FDA-Public Use
  Company Number: None

PATIENT
  Age: 76 Year
  Sex: Male
  Weight: 98 kg

DRUGS (6)
  1. CLINDAMYCIN [Suspect]
     Active Substance: CLINDAMYCIN
     Indication: Postoperative wound infection
     Dosage: 1 DOSAGE FORM, Q8H (1-1-1)
     Route: 042
     Dates: start: 20220927, end: 20220929
  2. CLINDAMYCIN [Suspect]
     Active Substance: CLINDAMYCIN
     Dosage: 3 DOSAGE FORM (DAILY DOSE)
     Route: 065
     Dates: end: 20220929
  3. GENTAMICIN [Suspect]
     Active Substance: GENTAMICIN
     Indication: Postoperative wound infection
     Dosage: UNK
     Route: 042
  4. GENTAMICIN [Suspect]
     Active Substance: GENTAMICIN
     Dosage: UNK (DAILY DOSE)
     Route: 065
     Dates: start: 20220927, end: 20220929
  5. CLINDAMYCIN [Suspect]
     Active Substance: CLINDAMYCIN
     Indication: C-reactive protein increased
     Dosage: 2 DOSAGE FORM
     Route: 048
  6. CLINDAMYCIN [Suspect]
     Active Substance: CLINDAMYCIN
     Dosage: UNK (DAILY DOSE)
     Route: 065
     Dates: start: 20220926, end: 20220929

REACTIONS (6)
  - Toxic skin eruption [Recovered/Resolved]
  - Toxic skin eruption [Recovered/Resolved]
  - Toxic skin eruption [Recovered/Resolved]
  - Rash maculo-papular [Recovered/Resolved]
  - Rash maculo-papular [Recovered/Resolved]
  - Rash maculo-papular [Recovered/Resolved]

NARRATIVE: CASE EVENT DATE: 20220926
